FAERS Safety Report 5731164-5 (Version None)
Quarter: 2008Q2

REPORT INFORMATION
  Report Type: 
  Country: None (occurrence: None)
  Receive Date: 20080507
  Receipt Date: 20080505
  Transmission Date: 20081010
  Serious: Yes (Other)
  Sender: FDA-Public Use
  Company Number: JP-BOEHRINGER INGELHEIM GMBH, GERMANY-2008-DE-02661GD

PATIENT
  Age: 74 Year
  Sex: Male

DRUGS (1)
  1. MORPHINE [Suspect]
     Indication: CANCER PAIN
     Route: 048

REACTIONS (4)
  - CONSTIPATION [None]
  - DELIRIUM [None]
  - LETHARGY [None]
  - VOMITING [None]
